FAERS Safety Report 4337016-X (Version None)
Quarter: 2004Q1

REPORT INFORMATION
  Report Type: 
  Country: None (occurrence: None)
  Receive Date: 20040329
  Receipt Date: 20040119
  Transmission Date: 20041129
  Serious: No
  Sender: FDA-Public Use
  Company Number: USA040156966

PATIENT
  Age: 11 Year
  Sex: Female
  Weight: 40 kg

DRUGS (2)
  1. STRATTERA [Suspect]
     Indication: ATTENTION DEFICIT/HYPERACTIVITY DISORDER
     Dosage: 60 MG/DAY
  2. ZOLOFT [Concomitant]

REACTIONS (2)
  - PRESCRIBED OVERDOSE [None]
  - SOMNOLENCE [None]
